FAERS Safety Report 4527529-X (Version None)
Quarter: 2004Q4

REPORT INFORMATION
  Report Type: 
  Country: None (occurrence: None)
  Receive Date: 20041130
  Receipt Date: 20040922
  Transmission Date: 20050328
  Serious: No
  Sender: FDA-Public Use
  Company Number: WAES 0409USA02053

PATIENT
  Age: 63 Year
  Sex: Female
  Weight: 88.4514 kg

DRUGS (2)
  1. ZETIA [Suspect]
     Indication: HYPERCHOLESTEROLAEMIA
     Dosage: 10 + 20 MG/DAILY/PO
     Route: 048
     Dates: start: 20040413, end: 20040916
  2. ZETIA [Suspect]
     Indication: HYPERCHOLESTEROLAEMIA
     Dosage: 10 + 20 MG/DAILY/PO
     Route: 048
     Dates: start: 20040916, end: 20040918

REACTIONS (3)
  - ASTHMA [None]
  - DYSPNOEA [None]
  - PRESCRIBED OVERDOSE [None]
